FAERS Safety Report 16757095 (Version 1)
Quarter: 2019Q3

REPORT INFORMATION
  Report Type: Spontaneous
  Country: BE (occurrence: BE)
  Receive Date: 20190829
  Receipt Date: 20190829
  Transmission Date: 20191005
  Serious: Yes (Death, Other)
  Sender: FDA-Public Use
  Company Number: BE-JNJFOC-20190833528

PATIENT
  Age: 65 Year
  Sex: Female

DRUGS (9)
  1. NEFOPAM [Suspect]
     Active Substance: NEFOPAM
     Dosage: 30 MG, 1/DAY
     Route: 048
  2. ARIPIPRAZOLE. [Concomitant]
     Active Substance: ARIPIPRAZOLE
     Indication: PRODUCT USED FOR UNKNOWN INDICATION
     Dosage: 15 MG, 1/DAY
     Route: 065
  3. MIRTAZAPINE. [Concomitant]
     Active Substance: MIRTAZAPINE
     Indication: PRODUCT USED FOR UNKNOWN INDICATION
     Dosage: 15 MG, 1/DAY
     Route: 065
  4. NEFOPAM [Suspect]
     Active Substance: NEFOPAM
     Indication: PRODUCT USED FOR UNKNOWN INDICATION
     Dosage: 120 MG, 1/DAY
     Route: 048
  5. AMISULPRIDE [Concomitant]
     Active Substance: AMISULPRIDE
     Indication: PRODUCT USED FOR UNKNOWN INDICATION
     Dosage: 50 MG, 1/DAY
     Route: 065
  6. AMITRIPTYLINE [Concomitant]
     Active Substance: AMITRIPTYLINE
     Indication: PRODUCT USED FOR UNKNOWN INDICATION
     Dosage: 75 MG, 1/DAY
     Route: 065
  7. BUPROPION. [Concomitant]
     Active Substance: BUPROPION
     Indication: PRODUCT USED FOR UNKNOWN INDICATION
     Dosage: 300 MG, 1/DAY
     Route: 065
  8. NEFOPAM [Suspect]
     Active Substance: NEFOPAM
     Dosage: 60 MG, 1/DAY
     Route: 048
  9. TRAMADOL HYDROCHLORIDE. [Suspect]
     Active Substance: TRAMADOL HYDROCHLORIDE
     Indication: PRODUCT USED FOR UNKNOWN INDICATION
     Dosage: 300 MG, 1/DAY
     Route: 065

REACTIONS (7)
  - Respiratory failure [Fatal]
  - Bundle branch block right [Fatal]
  - Shock [Fatal]
  - Serotonin syndrome [Fatal]
  - Hyperlactacidaemia [Fatal]
  - Supraventricular tachycardia [Fatal]
  - Coma [Fatal]
